FAERS Safety Report 20005631 (Version 3)
Quarter: 2021Q4

REPORT INFORMATION
  Report Type: Spontaneous
  Country: US (occurrence: US)
  Receive Date: 20211027
  Receipt Date: 20211228
  Transmission Date: 20220303
  Serious: No
  Sender: FDA-Public Use
  Company Number: US-BEH-2021137490

PATIENT
  Age: 52 Year
  Sex: Female

DRUGS (6)
  1. HIZENTRA [Suspect]
     Active Substance: HUMAN IMMUNOGLOBULIN G
     Dosage: UNK
     Route: 065
     Dates: start: 20211025
  2. HIZENTRA [Suspect]
     Active Substance: HUMAN IMMUNOGLOBULIN G
     Dosage: UNK
     Route: 065
     Dates: start: 20211025
  3. HIZENTRA [Suspect]
     Active Substance: HUMAN IMMUNOGLOBULIN G
     Dosage: 10 GRAM, QW
     Route: 065
     Dates: start: 20211217
  4. HIZENTRA [Suspect]
     Active Substance: HUMAN IMMUNOGLOBULIN G
     Dosage: 2 GRAM, QW
     Route: 065
     Dates: start: 20211217
  5. ZYRTEC [Concomitant]
     Active Substance: CETIRIZINE HYDROCHLORIDE
     Dosage: UNK, ON ROTATING BASIS
  6. LORATADINE [Concomitant]
     Active Substance: LORATADINE
     Dosage: UNK, ON ROTATING BASIS

REACTIONS (12)
  - Infusion site erythema [Not Recovered/Not Resolved]
  - Infusion site induration [Recovered/Resolved]
  - Infusion site pain [Unknown]
  - Urticaria [Unknown]
  - Pain [Unknown]
  - Hair disorder [Unknown]
  - Infusion site pain [Not Recovered/Not Resolved]
  - Infusion site mass [Recovering/Resolving]
  - Infusion site erythema [Recovering/Resolving]
  - Infusion site induration [Recovering/Resolving]
  - Infusion site haemorrhage [Unknown]
  - Infusion site mass [Unknown]

NARRATIVE: CASE EVENT DATE: 20211025
